FAERS Safety Report 9100876 (Version 1)
Quarter: 2013Q1

REPORT INFORMATION
  Report Type: Spontaneous
  Country: US (occurrence: US)
  Receive Date: 20130214
  Receipt Date: 20130214
  Transmission Date: 20140127
  Serious: Yes (Other)
  Sender: FDA-Public Use
  Company Number: US-PFIZER INC-2013055489

PATIENT
  Age: 50 Year
  Sex: Male
  Weight: 74.83 kg

DRUGS (6)
  1. DEPO-TESTOSTERONE [Suspect]
     Indication: BLOOD TESTOSTERONE DECREASED
     Dosage: UNK, WEEKLY
     Dates: start: 2009, end: 201212
  2. ARIMIDEX [Concomitant]
     Dosage: 0.5 MG (HALF OF 1MG), DAILY
     Dates: start: 2008
  3. VITAMIN C [Concomitant]
     Dosage: 500 MG, DAILY
     Dates: start: 2008
  4. DEHYDROEPIANDROSTERONE [Concomitant]
     Dosage: UNK
     Dates: start: 2008
  5. COLECALCIFEROL [Concomitant]
     Dosage: 2000 IU, UNK
     Dates: start: 2008
  6. MAGNESIUM CITRATE [Concomitant]
     Dosage: 5MG, 3X/DAY (ONE IN THE MORNING AND TWO AT NIGHT)
     Dates: start: 2008

REACTIONS (2)
  - Limb discomfort [Unknown]
  - Injection site pain [Recovered/Resolved]
